FAERS Safety Report 6080963-1 (Version None)
Quarter: 2009Q1

REPORT INFORMATION
  Report Type: 
  Country: None (occurrence: None)
  Receive Date: 20090217
  Receipt Date: 20090211
  Transmission Date: 20090719
  Serious: No
  Sender: FDA-Public Use
  Company Number: US-B.I. PHARMACEUTICALS,INC./RIDGEFIELD-2009-BP-01814BP

PATIENT

DRUGS (1)
  1. MICARDIS [Suspect]

REACTIONS (3)
  - CRYING [None]
  - DEPRESSED MOOD [None]
  - MOOD ALTERED [None]
